FAERS Safety Report 14773322 (Version 1)
Quarter: 2018Q2

REPORT INFORMATION
  Report Type: Spontaneous
  Country: US (occurrence: US)
  Receive Date: 20180411
  Receipt Date: 20180411
  Transmission Date: 20180711
  Serious: Yes (Life-Threatening, Disabling, Other)
  Sender: FDA-Public Use
  Company Number: None

PATIENT
  Age: 46 Year
  Sex: Female
  Weight: 47.7 kg

DRUGS (13)
  1. TRAMADOL. [Suspect]
     Active Substance: TRAMADOL
     Indication: MUSCULOSKELETAL PAIN
     Dosage: ?          QUANTITY:15 TABLET(S);?
     Route: 048
     Dates: start: 20180407, end: 20180410
  2. BENADRYL [Concomitant]
     Active Substance: DIPHENHYDRAMINE HYDROCHLORIDE
  3. ONDANSETRON [Suspect]
     Active Substance: ONDANSETRON
     Indication: NAUSEA
     Dosage: ?          QUANTITY:12 TABLET(S);?
     Route: 048
     Dates: start: 20180410, end: 20180411
  4. ADDERALL [Concomitant]
     Active Substance: AMPHETAMINE ASPARTATE\AMPHETAMINE SULFATE\DEXTROAMPHETAMINE SACCHARATE\DEXTROAMPHETAMINE SULFATE
  5. ZOFRAN [Concomitant]
     Active Substance: ONDANSETRON HYDROCHLORIDE
  6. ADVIL [Concomitant]
     Active Substance: IBUPROFEN
  7. MONTEKAST [Concomitant]
     Active Substance: MONTELUKAST SODIUM
  8. NORCO [Concomitant]
     Active Substance: ACETAMINOPHEN\HYDROCODONE BITARTRATE
  9. TOPAMAX [Concomitant]
     Active Substance: TOPIRAMATE
  10. TYLENOL [Concomitant]
     Active Substance: ACETAMINOPHEN
  11. PLAQUENIL [Concomitant]
     Active Substance: HYDROXYCHLOROQUINE SULFATE
  12. FLEXERIL [Concomitant]
     Active Substance: CYCLOBENZAPRINE HYDROCHLORIDE
  13. IMMITREX [Concomitant]

REACTIONS (4)
  - Head injury [None]
  - Product use issue [None]
  - Crime [None]
  - Seizure [None]

NARRATIVE: CASE EVENT DATE: 20180410
